FAERS Safety Report 14853946 (Version 2)
Quarter: 2018Q2

REPORT INFORMATION
  Report Type: Spontaneous
  Country: JP (occurrence: JP)
  Receive Date: 20180507
  Receipt Date: 20180608
  Transmission Date: 20180711
  Serious: Yes (Hospitalization, Other)
  Sender: FDA-Public Use
  Company Number: JP-ELI_LILLY_AND_COMPANY-JP201804003808

PATIENT
  Age: 38 Year
  Sex: Female
  Weight: 42 kg

DRUGS (43)
  1. ZENTACORT [Suspect]
     Active Substance: BUDESONIDE
     Indication: GASTROENTERITIS EOSINOPHILIC
     Dosage: 9 MG, DAILY
     Route: 065
     Dates: start: 20170726, end: 20170824
  2. ZENTACORT [Suspect]
     Active Substance: BUDESONIDE
     Dosage: 6 MG, DAILY
     Route: 065
     Dates: start: 20170825, end: 20170907
  3. ZENTACORT [Suspect]
     Active Substance: BUDESONIDE
     Dosage: 9 MG, DAILY
     Route: 065
     Dates: start: 20170915, end: 20170929
  4. ZENTACORT [Suspect]
     Active Substance: BUDESONIDE
     Dosage: 9 MG, DAILY
     Route: 065
     Dates: start: 20171014, end: 20171110
  5. ZENTACORT [Suspect]
     Active Substance: BUDESONIDE
     Dosage: 9 MG, DAILY
     Route: 065
     Dates: start: 20180207, end: 20180213
  6. PREDNISOLONE. [Suspect]
     Active Substance: PREDNISOLONE
     Indication: GLOSSITIS
     Dosage: 35 MG, DAILY
     Route: 048
     Dates: start: 20171128, end: 20171204
  7. PREDNISOLONE. [Suspect]
     Active Substance: PREDNISOLONE
     Dosage: 20 MG, DAILY
     Route: 048
     Dates: start: 20180106, end: 20180119
  8. PREDNISOLONE. [Suspect]
     Active Substance: PREDNISOLONE
     Dosage: 40 MG, DAILY
     Route: 048
     Dates: start: 20180313, end: 20180319
  9. PREDNISOLONE. [Suspect]
     Active Substance: PREDNISOLONE
     Dosage: 30 MG, DAILY
     Route: 048
     Dates: start: 20180323, end: 20180326
  10. AMITIZA [Concomitant]
     Active Substance: LUBIPROSTONE
     Indication: CONSTIPATION
     Dosage: UNK
     Dates: start: 20170901
  11. MAGNESIUM OXIDE. [Concomitant]
     Active Substance: MAGNESIUM OXIDE
     Indication: CONSTIPATION
     Dosage: UNK
     Dates: start: 20170818
  12. ZENTACORT [Suspect]
     Active Substance: BUDESONIDE
     Dosage: 6 MG, DAILY
     Route: 065
     Dates: start: 20180214, end: 20180216
  13. PREDNISOLONE. [Suspect]
     Active Substance: PREDNISOLONE
     Dosage: 30 MG, DAILY
     Route: 048
     Dates: start: 20171205, end: 20171222
  14. BROTIZOLAM [Concomitant]
     Active Substance: BROTIZOLAM
     Indication: INSOMNIA
     Dosage: 0.25 MG, PRN
     Route: 048
     Dates: start: 20151124
  15. LORAMET [Concomitant]
     Active Substance: LORMETAZEPAM
     Indication: INSOMNIA
     Dosage: 1 MG, PRN
     Route: 048
     Dates: start: 20170926
  16. DULOXETINE HYDROCHLORIDE. [Suspect]
     Active Substance: DULOXETINE HYDROCHLORIDE
     Dosage: 40 MG, BID
     Route: 048
     Dates: start: 20170726
  17. MIGSIS [Concomitant]
     Active Substance: LOMERIZINE HYDROCHLORIDE
     Dosage: UNK
     Dates: start: 20160510, end: 20170707
  18. DULOXETINE HYDROCHLORIDE. [Suspect]
     Active Substance: DULOXETINE HYDROCHLORIDE
     Indication: DEPRESSION
     Dosage: 40 MG, DAILY
     Route: 048
     Dates: start: 20151124, end: 20170716
  19. ZENTACORT [Suspect]
     Active Substance: BUDESONIDE
     Dosage: 9 MG, DAILY
     Route: 065
     Dates: start: 20180120, end: 20180202
  20. ZENTACORT [Suspect]
     Active Substance: BUDESONIDE
     Dosage: 9 MG, DAILY
     Route: 065
     Dates: start: 20180217, end: 20180305
  21. PREDNISOLONE. [Suspect]
     Active Substance: PREDNISOLONE
     Indication: GASTROENTERITIS EOSINOPHILIC
     Dosage: 30 MG, DAILY
     Route: 048
     Dates: start: 20170930, end: 20171013
  22. PREDNISOLONE. [Suspect]
     Active Substance: PREDNISOLONE
     Dosage: 25 MG, DAILY
     Route: 048
     Dates: start: 20171223, end: 20180105
  23. PREDNISOLONE. [Suspect]
     Active Substance: PREDNISOLONE
     Dosage: 60 MG, DAILY
     Route: 048
     Dates: start: 20180310, end: 20180312
  24. PREDNISOLONE. [Suspect]
     Active Substance: PREDNISOLONE
     Dosage: 25 MG, DAILY
     Route: 048
     Dates: start: 20180327, end: 20180329
  25. PREDNISOLONE. [Suspect]
     Active Substance: PREDNISOLONE
     Dosage: 10 MG, DAILY
     Route: 048
     Dates: start: 20180406, end: 20180413
  26. MARVELON [Concomitant]
     Active Substance: DESOGESTREL\ETHINYL ESTRADIOL
     Indication: MENORRHAGIA
     Dosage: UNK
     Route: 048
     Dates: start: 2003
  27. ZOMIG [Concomitant]
     Active Substance: ZOLMITRIPTAN
     Indication: HEADACHE
     Dosage: 2.5 MG, PRN
     Route: 048
     Dates: start: 20150915
  28. MIGSIS [Concomitant]
     Active Substance: LOMERIZINE HYDROCHLORIDE
     Dosage: UNK
     Dates: start: 20170805, end: 20180315
  29. ZENTACORT [Suspect]
     Active Substance: BUDESONIDE
     Dosage: 3 MG, DAILY
     Route: 065
     Dates: start: 20180310, end: 20180310
  30. PREDNISOLONE. [Suspect]
     Active Substance: PREDNISOLONE
     Dosage: 5 MG, DAILY
     Route: 048
     Dates: start: 20180414
  31. DEPAKENE [Concomitant]
     Active Substance: VALPROIC ACID
     Dosage: UNK
     Dates: start: 20170805, end: 20180315
  32. PONSTEL [Concomitant]
     Active Substance: MEFENAMIC ACID
     Indication: HEADACHE
     Dosage: 250 MG, PRN
     Route: 048
     Dates: start: 20150929
  33. RIZE                               /00624801/ [Concomitant]
     Active Substance: CLOTIAZEPAM
     Dosage: UNK
     Dates: start: 20150929, end: 20180319
  34. ZENTACORT [Suspect]
     Active Substance: BUDESONIDE
     Dosage: 6 MG, DAILY
     Route: 065
     Dates: start: 20180307, end: 20180309
  35. PREDNISOLONE. [Suspect]
     Active Substance: PREDNISOLONE
     Indication: CONSTIPATION
     Dosage: 40 MG, DAILY
     Route: 048
     Dates: start: 20171110, end: 20171127
  36. PREDNISOLONE. [Suspect]
     Active Substance: PREDNISOLONE
     Dosage: 20 MG, DAILY
     Route: 048
     Dates: start: 20180330, end: 20180402
  37. PREDNISOLONE. [Suspect]
     Active Substance: PREDNISOLONE
     Dosage: 15 MG, DAILY
     Route: 048
     Dates: start: 20180403, end: 20180405
  38. DEPAKENE [Concomitant]
     Active Substance: VALPROIC ACID
     Dosage: UNK
     Dates: start: 20150915, end: 20170707
  39. NEXIUM [Concomitant]
     Active Substance: ESOMEPRAZOLE MAGNESIUM
     Dosage: UNK
     Dates: start: 20160510, end: 20170707
  40. RIZE                               /00624801/ [Concomitant]
     Active Substance: CLOTIAZEPAM
     Dosage: UNK, PRN
     Dates: start: 20180320
  41. SENNOSIDE                          /00571901/ [Concomitant]
     Active Substance: SENNOSIDES A AND B
     Indication: CONSTIPATION
     Dosage: UNK, PRN
  42. ZENTACORT [Suspect]
     Active Substance: BUDESONIDE
     Dosage: 3 MG, DAILY
     Route: 065
     Dates: start: 20170908, end: 20170914
  43. PREDNISOLONE. [Suspect]
     Active Substance: PREDNISOLONE
     Dosage: 35 MG, DAILY
     Route: 048
     Dates: start: 20180320, end: 20180322

REACTIONS (22)
  - Hypoaesthesia [Recovering/Resolving]
  - Rash [Recovering/Resolving]
  - Alopecia [Unknown]
  - Acne [Recovering/Resolving]
  - Hyperplastic cholecystopathy [Unknown]
  - Tremor [Recovering/Resolving]
  - Irritable bowel syndrome [Unknown]
  - Hallucination, visual [Recovering/Resolving]
  - Hallucination, auditory [Recovering/Resolving]
  - Depression [Recovering/Resolving]
  - Glossitis [Unknown]
  - Headache [Recovering/Resolving]
  - Feeling abnormal [Unknown]
  - Stomatitis [Unknown]
  - Muscular weakness [Recovering/Resolving]
  - Bone density decreased [Unknown]
  - Overdose [Not Recovered/Not Resolved]
  - Gastroenteritis eosinophilic [Not Recovered/Not Resolved]
  - Hepatic function abnormal [Unknown]
  - Oedema peripheral [Recovering/Resolving]
  - Withdrawal syndrome [Recovering/Resolving]
  - Herpes simplex [Unknown]

NARRATIVE: CASE EVENT DATE: 20151124
